FAERS Safety Report 25551356 (Version 2)
Quarter: 2025Q3

REPORT INFORMATION
  Report Type: Report from Study
  Country: JP (occurrence: JP)
  Receive Date: 20250714
  Receipt Date: 20250808
  Transmission Date: 20251021
  Serious: Yes (Hospitalization)
  Sender: EISAI
  Company Number: JP-Eisai-202504438_LEQ_P_1

PATIENT
  Age: 71 Year
  Sex: Male
  Weight: 51.6 kg

DRUGS (9)
  1. LEQEMBI [Suspect]
     Active Substance: LECANEMAB-IRMB
     Indication: Cognitive disorder
     Dates: start: 20241212, end: 20250403
  2. DAYVIGO [Concomitant]
     Active Substance: LEMBOREXANT
     Indication: Cognitive disorder
  3. ZONISAMIDE [Concomitant]
     Active Substance: ZONISAMIDE
  4. CARBIDOPA\LEVODOPA [Concomitant]
     Active Substance: CARBIDOPA\LEVODOPA
  5. MIDODRINE HYDROCHLORIDE [Concomitant]
     Active Substance: MIDODRINE HYDROCHLORIDE
  6. SODIUM PHOSPHATE, DIBASIC\SODIUM PHOSPHATE, MONOBASIC [Concomitant]
     Active Substance: SODIUM PHOSPHATE, DIBASIC\SODIUM PHOSPHATE, MONOBASIC
  7. CALCIUM GLUCONATE HYDRATE [Concomitant]
  8. TIAPRIDE HYDROCHLORIDE [Concomitant]
     Active Substance: TIAPRIDE HYDROCHLORIDE
     Indication: Cognitive disorder
  9. HERBALS [Concomitant]
     Active Substance: HERBALS
     Indication: Cognitive disorder

REACTIONS (3)
  - Fall [Unknown]
  - Craniofacial fracture [Unknown]
  - Delirium [Unknown]

NARRATIVE: CASE EVENT DATE: 20250101
